FAERS Safety Report 9562464 (Version 1)
Quarter: 2013Q3

REPORT INFORMATION
  Report Type: Spontaneous
  Country: DE (occurrence: DE)
  Receive Date: 20130927
  Receipt Date: 20130927
  Transmission Date: 20140515
  Serious: Yes (Hospitalization, Other)
  Sender: FDA-Public Use
  Company Number: DE-TEVA-433684GER

PATIENT
  Age: 51 Year
  Sex: Male

DRUGS (12)
  1. COPAXONE [Suspect]
     Indication: MULTIPLE SCLEROSIS
     Dosage: 1 DOSAGE FORMS DAILY;
     Route: 058
  2. AMIODARONE [Concomitant]
     Indication: VENTRICULAR TACHYCARDIA
     Dosage: 200 MILLIGRAM DAILY;
     Dates: start: 2005
  3. MARCUMAR [Concomitant]
     Indication: INTRACARDIAC THROMBUS
     Route: 048
  4. POTASSIUM [Concomitant]
     Dosage: 40 MILLIMOL DAILY;
     Route: 048
  5. MAGNESIUM VERLA [Concomitant]
     Dosage: 2 DOSAGE FORMS DAILY;
  6. TOREM [Concomitant]
     Dosage: 5 MILLIGRAM DAILY;
     Route: 048
  7. SPIRONOLACTONE [Concomitant]
     Dosage: 25 MILLIGRAM DAILY;
     Route: 048
  8. RAMIPRIL [Concomitant]
     Dosage: 2.5 MILLIGRAM DAILY;
  9. RAMIPRIL [Concomitant]
     Dosage: 1.25 MILLIGRAM DAILY;
  10. CARVEDILOL [Concomitant]
     Dosage: 18.75 MILLIGRAM DAILY;
  11. SIMVASTATIN [Concomitant]
     Dosage: 20 MILLIGRAM DAILY;
     Route: 048
  12. PANTOPRAZOLE [Concomitant]
     Dosage: 40 MILLIGRAM DAILY;

REACTIONS (7)
  - Cardiac failure [Recovered/Resolved]
  - Congestive cardiomyopathy [Not Recovered/Not Resolved]
  - Atrial fibrillation [Recovered/Resolved]
  - Acute pulmonary oedema [Recovered/Resolved]
  - Mitral valve incompetence [Not Recovered/Not Resolved]
  - Tricuspid valve incompetence [Not Recovered/Not Resolved]
  - Thrombocytopenia [Recovered/Resolved]
